FAERS Safety Report 14265790 (Version 1)
Quarter: 2017Q4

REPORT INFORMATION
  Report Type: Spontaneous
  Country: DE (occurrence: DE)
  Receive Date: 20171209
  Receipt Date: 20171209
  Transmission Date: 20180321
  Serious: Yes (Other)
  Sender: FDA-Public Use
  Company Number: DE-CIPLA LTD.-2017DE22567

PATIENT

DRUGS (2)
  1. EPIRUBICIN [Suspect]
     Active Substance: EPIRUBICIN
     Indication: BREAST CANCER
     Dosage: 90 MG/M2, ON DAY 1 OF A 14-DAY OR ON DAY 1 OF A 21-DAY CYCLE
     Route: 065
  2. CYCLOPHOSPHAMIDE. [Suspect]
     Active Substance: CYCLOPHOSPHAMIDE
     Indication: BREAST CANCER
     Dosage: 600 MG/M2, ON DAY 1 OF A 14-DAY OR ON DAY 1 OF A 21-DAY CYCLE
     Route: 065

REACTIONS (1)
  - N-terminal prohormone brain natriuretic peptide increased [Unknown]
